FAERS Safety Report 10583488 (Version 1)
Quarter: 2014Q4

REPORT INFORMATION
  Report Type: Spontaneous
  Country: IN (occurrence: IN)
  Receive Date: 20141114
  Receipt Date: 20141114
  Transmission Date: 20150529
  Serious: Yes (Other)
  Sender: FDA-Public Use
  Company Number: IN-GE HEALTHCARE MEDICAL DIAGNOSTICS-OMPQ-PR-1411S-1448

PATIENT
  Age: 40 Year
  Sex: Female
  Weight: 60 kg

DRUGS (5)
  1. OMNIPAQUE [Suspect]
     Active Substance: IOHEXOL
     Indication: BACK PAIN
     Route: 042
     Dates: start: 20141104, end: 20141104
  2. OMNIPAQUE [Suspect]
     Active Substance: IOHEXOL
     Indication: COUGH
  3. OMNIPAQUE [Suspect]
     Active Substance: IOHEXOL
     Indication: ARTHRALGIA
  4. OMNIPAQUE [Suspect]
     Active Substance: IOHEXOL
     Indication: JOINT SWELLING
  5. OMNIPAQUE [Suspect]
     Active Substance: IOHEXOL
     Indication: DIAGNOSTIC PROCEDURE

REACTIONS (5)
  - Back pain [Recovered/Resolved]
  - Pyrexia [Recovered/Resolved]
  - Nausea [Recovered/Resolved]
  - Chills [Recovered/Resolved]
  - Headache [Recovered/Resolved]

NARRATIVE: CASE EVENT DATE: 201411
